FAERS Safety Report 15556791 (Version 2)
Quarter: 2020Q4

REPORT INFORMATION
  Report Type: Report from Study
  Country: US (occurrence: US)
  Receive Date: 20181026
  Receipt Date: 20201013
  Transmission Date: 20210113
  Serious: Yes (Hospitalization)
  Sender: FDA-Public Use
  Company Number: PHEH2018US044927

PATIENT
  Age: 77 Year
  Sex: Female
  Weight: 106.59 kg

DRUGS (1)
  1. COSENTYX [Suspect]
     Active Substance: SECUKINUMAB
     Indication: PSORIASIS
     Dosage: 300 MG, QMO
     Route: 065
     Dates: start: 20150518

REACTIONS (2)
  - Myalgia [Unknown]
  - Arthritis [Unknown]

NARRATIVE: CASE EVENT DATE: 20160920
